APPROVED DRUG PRODUCT: DICLOFENAC SODIUM AND MISOPROSTOL
Active Ingredient: DICLOFENAC SODIUM; MISOPROSTOL
Strength: 75MG;0.2MG
Dosage Form/Route: TABLET, DELAYED RELEASE;ORAL
Application: A200158 | Product #002
Applicant: SANDOZ INC
Approved: May 9, 2013 | RLD: No | RS: No | Type: DISCN